FAERS Safety Report 6579904-X (Version None)
Quarter: 2010Q1

REPORT INFORMATION
  Report Type: 
  Country: None (occurrence: None)
  Receive Date: 20100212
  Receipt Date: 20100204
  Transmission Date: 20100710
  Serious: Yes (Death)
  Sender: FDA-Public Use
  Company Number: GXKR2010NO01507

PATIENT
  Sex: Female

DRUGS (1)
  1. AMOXICILLIN [Suspect]
     Indication: PNEUMONIA
     Route: 048
     Dates: start: 20100106, end: 20100111

REACTIONS (2)
  - DRUG HYPERSENSITIVITY [None]
  - TOXIC EPIDERMAL NECROLYSIS [None]
